FAERS Safety Report 4383172-7 (Version None)
Quarter: 2004Q2

REPORT INFORMATION
  Report Type: 
  Country: None (occurrence: None)
  Receive Date: 20040623
  Receipt Date: 20040614
  Transmission Date: 20050107
  Serious: Yes (Death, Other)
  Sender: FDA-Public Use
  Company Number: PHHO2004JP08451

PATIENT
  Age: 50 Year
  Sex: Male

DRUGS (6)
  1. SANDIMMUNE [Suspect]
     Indication: LUNG TRANSPLANT
     Dosage: 70 - 90 MG / DAY
     Route: 042
     Dates: start: 20040520
  2. SIMULECT / CHI 621A / SDZ CHI 621 [Suspect]
     Indication: LUNG TRANSPLANT
     Dosage: 20 MG, ONCE/SINGLE
     Route: 042
     Dates: start: 20040521, end: 20040521
  3. SIMULECT / CHI 621A / SDZ CHI 621 [Suspect]
     Dosage: 20 MG, ONCE/SINGLE
     Route: 042
     Dates: start: 20040525, end: 20040525
  4. METHYLPREDNISOLONE [Suspect]
     Indication: LUNG TRANSPLANT
     Dosage: 50 - 500 MG / DAY
     Route: 042
     Dates: start: 20040520
  5. CELLCEPT [Suspect]
     Indication: LUNG TRANSPLANT
     Dosage: 2 G / DAY
     Route: 048
     Dates: start: 20040501
  6. IMURAN [Suspect]
     Indication: LUNG TRANSPLANT
     Dosage: 100 MG / DAY
     Route: 042
     Dates: start: 20040520, end: 20040501

REACTIONS (5)
  - BACTERIAL SEPSIS [None]
  - LUNG OPERATION [None]
  - PNEUMONIA [None]
  - PULMONARY ARTERY THROMBOSIS [None]
  - PULMONARY OEDEMA [None]
